FAERS Safety Report 7721704-9 (Version None)
Quarter: 2011Q3

REPORT INFORMATION
  Report Type: 
  Country: None (occurrence: None)
  Receive Date: 20110831
  Receipt Date: 20110825
  Transmission Date: 20111222
  Serious: No
  Sender: FDA-Public Use
  Company Number: GB-VIIV HEALTHCARE LIMITED-B0741956A

PATIENT
  Age: 69 Year
  Sex: Female

DRUGS (6)
  1. RITONAVIR [Concomitant]
  2. LAMIVUDINE [Concomitant]
  3. CELSENTRI [Suspect]
     Indication: HIV TROPISM TEST
     Dosage: 150MG PER DAY
     Route: 048
     Dates: start: 20110613, end: 20110704
  4. INSULIN [Concomitant]
  5. UNKNOWN DRUG [Concomitant]
     Indication: HYPERTENSION
  6. STATINS [Concomitant]

REACTIONS (4)
  - LETHARGY [None]
  - ASTHENIA [None]
  - BLOOD ALKALINE PHOSPHATASE INCREASED [None]
  - MOBILITY DECREASED [None]
